FAERS Safety Report 4720701-5 (Version None)
Quarter: 2005Q3

REPORT INFORMATION
  Report Type: 
  Country: None (occurrence: None)
  Receive Date: 20050719
  Receipt Date: 20050705
  Transmission Date: 20060218
  Serious: Yes (Other)
  Sender: FDA-Public Use
  Company Number: US_0503113935

PATIENT
  Age: 57 Year
  Sex: Female
  Weight: 78 kg

DRUGS (4)
  1. ZYPREXA [Suspect]
     Indication: BIPOLAR DISORDER
     Dosage: 20 MG/1 DAY
     Dates: start: 19960101, end: 20050101
  2. LITHIUM [Concomitant]
  3. IMIPRAMINE [Concomitant]
  4. METAGLIP [Concomitant]

REACTIONS (3)
  - BLOOD CHOLESTEROL ABNORMAL [None]
  - DIABETES MELLITUS [None]
  - HYPERTENSION [None]
